FAERS Safety Report 25164054 (Version 1)
Quarter: 2025Q2

REPORT INFORMATION
  Report Type: Spontaneous
  Country: RO (occurrence: RO)
  Receive Date: 20250405
  Receipt Date: 20250405
  Transmission Date: 20250717
  Serious: Yes (Other)
  Sender: AUROBINDO
  Company Number: RO-009507513-2265773

PATIENT
  Age: 58 Year

DRUGS (3)
  1. PEMETREXED [Suspect]
     Active Substance: PEMETREXED
     Indication: Lung adenocarcinoma
     Route: 065
     Dates: start: 202406
  2. CARBOPLATIN [Suspect]
     Active Substance: CARBOPLATIN
     Indication: Lung adenocarcinoma
     Route: 065
     Dates: start: 202406
  3. KEYTRUDA [Suspect]
     Active Substance: PEMBROLIZUMAB
     Indication: Lung adenocarcinoma
     Route: 065
     Dates: start: 202406

REACTIONS (7)
  - Pneumothorax [Unknown]
  - Recurrent cancer [Unknown]
  - Renal vein thrombosis [Unknown]
  - Malignant neoplasm progression [Unknown]
  - Radiation necrosis [Unknown]
  - Lung neoplasm [Unknown]
  - Lung consolidation [Unknown]

NARRATIVE: CASE EVENT DATE: 20240701
